FAERS Safety Report 4829353-7 (Version None)
Quarter: 2005Q4

REPORT INFORMATION
  Report Type: 
  Country: None (occurrence: None)
  Receive Date: 20051115
  Receipt Date: 20051115
  Transmission Date: 20060501
  Serious: Yes (Life-Threatening)
  Sender: FDA-Public Use
  Company Number: None

PATIENT
  Age: 27 Year
  Sex: Female
  Weight: 45.3597 kg

DRUGS (1)
  1. KETEK [Suspect]
     Indication: HYPERSENSITIVITY
     Dosage: 2 TABLETS  DAILY
     Dates: start: 20051111, end: 20051112

REACTIONS (12)
  - BLOOD PRESSURE DECREASED [None]
  - CHEST DISCOMFORT [None]
  - CHEST PAIN [None]
  - DIZZINESS [None]
  - DRUG HYPERSENSITIVITY [None]
  - DRUG INEFFECTIVE [None]
  - DYSPNOEA [None]
  - HYPOAESTHESIA [None]
  - TRANSIENT ISCHAEMIC ATTACK [None]
  - TREMOR [None]
  - VISION BLURRED [None]
  - VOMITING [None]
